FAERS Safety Report 18079922 (Version 2)
Quarter: 2020Q3

REPORT INFORMATION
  Report Type: Spontaneous
  Country: PL (occurrence: PL)
  Receive Date: 20200728
  Receipt Date: 20200805
  Transmission Date: 20201103
  Serious: Yes (Other)
  Sender: FDA-Public Use
  Company Number: PL-ROCHE-2649559

PATIENT
  Sex: Male
  Weight: 89 kg

DRUGS (1)
  1. HEMLIBRA [Suspect]
     Active Substance: EMICIZUMAB-KXWH
     Indication: HAEMOPHILIA
     Dosage: 150 MG/ML, 0.2 MG/1 KG OF BODY WEIGHT
     Route: 065
     Dates: start: 2017

REACTIONS (4)
  - Haemorrhage [Recovered/Resolved]
  - Contusion [Unknown]
  - Gingival bleeding [Recovered/Resolved]
  - Haemarthrosis [Recovering/Resolving]

NARRATIVE: CASE EVENT DATE: 202007
